FAERS Safety Report 9290878 (Version 1)
Quarter: 2013Q2

REPORT INFORMATION
  Report Type: Spontaneous
  Country: US (occurrence: US)
  Receive Date: 20130515
  Receipt Date: 20130515
  Transmission Date: 20140414
  Serious: No
  Sender: FDA-Public Use
  Company Number: US-B.I. PHARMACEUTICALS,INC./RIDGEFIELD-2013-BI-13367BP

PATIENT
  Sex: Female

DRUGS (1)
  1. JENTADUETO [Suspect]
     Indication: TYPE 2 DIABETES MELLITUS
     Dates: start: 201304, end: 20130509

REACTIONS (4)
  - Dizziness [Recovered/Resolved]
  - Malaise [Recovered/Resolved]
  - Dizziness [Recovered/Resolved]
  - Drug ineffective [Unknown]
